FAERS Safety Report 6770552-5 (Version None)
Quarter: 2010Q2

REPORT INFORMATION
  Report Type: 
  Country: None (occurrence: None)
  Receive Date: 20100615
  Receipt Date: 20100602
  Transmission Date: 20101027
  Serious: Yes (Hospitalization, Other)
  Sender: FDA-Public Use
  Company Number: PHHY2010JP03101

PATIENT
  Sex: Female
  Weight: 46 kg

DRUGS (8)
  1. GLEEVEC [Suspect]
     Indication: CHRONIC MYELOID LEUKAEMIA
     Dosage: 400 MG DAILY
     Route: 048
     Dates: start: 20050711, end: 20050726
  2. GLEEVEC [Suspect]
     Dosage: 200 MG, QD
     Route: 048
     Dates: start: 20050809, end: 20051001
  3. GLEEVEC [Suspect]
     Dosage: 400 MG, QD
     Route: 048
     Dates: start: 20051001, end: 20091224
  4. GLEEVEC [Suspect]
     Dosage: 200 MG, QD
     Route: 048
     Dates: start: 20100106
  5. DIOVAN [Concomitant]
     Indication: HYPERTENSION
     Dosage: 40 MG, UNK
     Route: 048
     Dates: start: 20090801
  6. LASIX [Concomitant]
     Indication: HYPERTENSION
     Dosage: 30MG, UNK
     Route: 048
     Dates: start: 20051201
  7. SELOKEN [Concomitant]
     Indication: HYPERTENSION
     Dosage: 20MG, UNK
     Route: 048
     Dates: start: 20080501
  8. MUCOSTA [Concomitant]
     Indication: GASTRITIS
     Dosage: 300MG, UNK
     Dates: start: 20051101

REACTIONS (5)
  - OEDEMA PERIPHERAL [None]
  - PULMONARY HYPERTENSION [None]
  - REFLUX OESOPHAGITIS [None]
  - TOXIC SKIN ERUPTION [None]
  - WEIGHT INCREASED [None]
